FAERS Safety Report 13076842 (Version 1)
Quarter: 2016Q4

REPORT INFORMATION
  Report Type: Spontaneous
  Country: US (occurrence: US)
  Receive Date: 20161230
  Receipt Date: 20161230
  Transmission Date: 20170207
  Serious: Yes (Other)
  Sender: FDA-Public Use
  Company Number: None

PATIENT
  Age: 28 Year
  Sex: Female
  Weight: 79.38 kg

DRUGS (1)
  1. NEXPLANON [Suspect]
     Active Substance: ETONOGESTREL
     Dates: start: 20141023

REACTIONS (4)
  - Implant site reaction [None]
  - Irritability [None]
  - Discomfort [None]
  - Skin exfoliation [None]

NARRATIVE: CASE EVENT DATE: 20161214
